FAERS Safety Report 9617991 (Version 2)
Quarter: 2014Q1

REPORT INFORMATION
  Report Type: Report from Study
  Country: US (occurrence: US)
  Receive Date: 20131011
  Receipt Date: 20140210
  Transmission Date: 20141002
  Serious: Yes (Hospitalization)
  Sender: FDA-Public Use
  Company Number: US-ABBVIE-13P-163-1153232-00

PATIENT
  Age: 47 Year
  Sex: Female
  Weight: 59.02 kg

DRUGS (3)
  1. HUMIRA [Suspect]
     Indication: CROHN^S DISEASE
     Dosage: LOADING DOSE
     Route: 058
     Dates: start: 201302, end: 201302
  2. HUMIRA [Suspect]
     Route: 058
     Dates: start: 201309
  3. SUPPOSITORY [Concomitant]
     Indication: PRODUCT USED FOR UNKNOWN INDICATION

REACTIONS (4)
  - Intestinal perforation [Recovered/Resolved]
  - Sepsis [Recovered/Resolved]
  - Colectomy [Recovered/Resolved]
  - Colostomy [Recovered/Resolved]
